FAERS Safety Report 5188304-9 (Version None)
Quarter: 2006Q4

REPORT INFORMATION
  Report Type: 
  Country: None (occurrence: None)
  Receive Date: 20061221
  Receipt Date: 20061211
  Transmission Date: 20070319
  Serious: Yes (Hospitalization)
  Sender: FDA-Public Use
  Company Number: NL-ROCHE-474953

PATIENT
  Age: 76 Year
  Sex: Female

DRUGS (8)
  1. CAPECITABINE [Suspect]
     Route: 048
     Dates: start: 20060427
  2. BEVACIZUMAB [Suspect]
     Route: 042
     Dates: start: 20060427
  3. OXALIPLATIN [Suspect]
     Route: 042
     Dates: start: 20060427
  4. CETUXIMAB [Suspect]
     Route: 042
     Dates: start: 20060427
  5. MOVICOLON [Concomitant]
  6. NEXIUM [Concomitant]
  7. TEMAZEPAM [Concomitant]
  8. ONDANSETRON HCL [Concomitant]

REACTIONS (2)
  - PANCREATITIS [None]
  - PORTAL VEIN THROMBOSIS [None]
